FAERS Safety Report 8720498 (Version 1)
Quarter: 2012Q4

REPORT INFORMATION
  Report Type: 
  Country: US (occurrence: US)
  Receive Date: 20120910
  Receipt Date: 20120910
  Transmission Date: 20130627
  Serious: Yes (Other)
  Sender: FDA-Public Use
  Company Number: US-ROCHE-1098752

PATIENT
  Age: 53 Year
  Sex: Male

DRUGS (2)
  1. ACTIVASE [Suspect]
     Indication: ACUTE MYOCARDIAL INFARCTION
     Route: 040
  2. ACTIVASE [Suspect]
     Dosage: 50 mg over 30 minutes
     Route: 041

REACTIONS (6)
  - Hypotension [Unknown]
  - Rhythm idioventricular [Unknown]
  - Nausea [Unknown]
  - Hyperhidrosis [Unknown]
  - Vomiting [Unknown]
  - Ventricular extrasystoles [Unknown]
